FAERS Safety Report 25505518 (Version 2)
Quarter: 2025Q3

REPORT INFORMATION
  Report Type: Spontaneous
  Country: US (occurrence: US)
  Receive Date: 20250702
  Receipt Date: 20250819
  Transmission Date: 20251021
  Serious: Yes (Other)
  Sender: ASCENT PHARMACEUTICALS INC
  Company Number: US-ASCENT-2025ASSPO00121

PATIENT
  Age: 71 Year
  Sex: Male
  Weight: 82 kg

DRUGS (4)
  1. DUTASTERIDE [Suspect]
     Active Substance: DUTASTERIDE
     Indication: Prostatomegaly
     Route: 048
     Dates: start: 2021, end: 20250512
  2. DUTASTERIDE [Suspect]
     Active Substance: DUTASTERIDE
     Indication: Pollakiuria
  3. TAMSULOSIN [Concomitant]
     Active Substance: TAMSULOSIN
     Indication: Prostatomegaly
     Route: 065
  4. ATORVASTATIN [Concomitant]
     Active Substance: ATORVASTATIN
     Indication: Blood cholesterol increased
     Route: 065

REACTIONS (2)
  - Breast cancer male [Unknown]
  - Drug ineffective [Unknown]

NARRATIVE: CASE EVENT DATE: 20250512
